FAERS Safety Report 24109711 (Version 1)
Quarter: 2024Q3

REPORT INFORMATION
  Report Type: Spontaneous
  Country: CN (occurrence: CN)
  Receive Date: 20240718
  Receipt Date: 20240718
  Transmission Date: 20241016
  Serious: Yes (Other)
  Sender: PFIZER
  Company Number: CN-PFIZER INC-PV202400093398

PATIENT
  Age: 8 Year
  Sex: Male
  Weight: 29 kg

DRUGS (8)
  1. CYTARABINE [Suspect]
     Active Substance: CYTARABINE
     Indication: B-cell lymphoma
     Dosage: 92 MG, 1X/DAY (D2-D7)
     Route: 041
     Dates: start: 20240609, end: 20240614
  2. CYTARABINE [Suspect]
     Active Substance: CYTARABINE
     Indication: Chemotherapy
  3. METHOTREXATE SODIUM [Suspect]
     Active Substance: METHOTREXATE SODIUM
     Indication: B-cell lymphoma
     Dosage: 2750 MG, 1X/DAY (D1)
     Route: 041
     Dates: start: 20240608, end: 20240608
  4. METHOTREXATE SODIUM [Suspect]
     Active Substance: METHOTREXATE SODIUM
     Indication: Chemotherapy
  5. LEUCOVORIN CALCIUM [Concomitant]
     Active Substance: LEUCOVORIN CALCIUM
     Indication: B-cell lymphoma
     Dosage: 14 MG, 4X/DAY
     Route: 042
     Dates: start: 20240608, end: 20240609
  6. LEUCOVORIN CALCIUM [Concomitant]
     Active Substance: LEUCOVORIN CALCIUM
     Indication: Chemotherapy
  7. MABTHERA [Concomitant]
     Active Substance: RITUXIMAB
     Indication: B-cell lymphoma
     Dosage: 337.5 MG, 1X/DAY (D0)
     Route: 041
     Dates: start: 20240607, end: 20240607
  8. MABTHERA [Concomitant]
     Active Substance: RITUXIMAB
     Indication: Chemotherapy

REACTIONS (1)
  - Liver injury [Recovered/Resolved]

NARRATIVE: CASE EVENT DATE: 20240613
